FAERS Safety Report 18350585 (Version 1)
Quarter: 2020Q4

REPORT INFORMATION
  Report Type: Spontaneous
  Country: DE (occurrence: DE)
  Receive Date: 20201006
  Receipt Date: 20201006
  Transmission Date: 20210114
  Serious: Yes (Hospitalization, Other)
  Sender: FDA-Public Use
  Company Number: NVSC2020DE263491

PATIENT
  Age: 13 Year
  Sex: Female
  Weight: 65 kg

DRUGS (2)
  1. IBUPROFEN. [Suspect]
     Active Substance: IBUPROFEN
     Indication: SUICIDAL IDEATION
     Dosage: 6 G
     Route: 048
     Dates: start: 20190630, end: 20190630
  2. METAMIZOLE [Suspect]
     Active Substance: METAMIZOLE
     Indication: SUICIDAL IDEATION
     Dosage: 3 G
     Route: 048
     Dates: start: 20190630, end: 20190630

REACTIONS (2)
  - Toxicity to various agents [Unknown]
  - Intentional overdose [Unknown]

NARRATIVE: CASE EVENT DATE: 20190630
